FAERS Safety Report 15935842 (Version 2)
Quarter: 2020Q4

REPORT INFORMATION
  Report Type: Spontaneous
  Country: US (occurrence: US)
  Receive Date: 20190208
  Receipt Date: 20201228
  Transmission Date: 20210113
  Serious: Yes (Other)
  Sender: FDA-Public Use
  Company Number: US-PFIZER INC-2018152007

PATIENT
  Age: 51 Year
  Sex: Male
  Weight: 109 kg

DRUGS (5)
  1. SOMAVERT [Suspect]
     Active Substance: PEGVISOMANT
     Indication: ACROMEGALY
     Dosage: 10 MG, DAILY
     Dates: start: 20180310
  2. SOMAVERT [Suspect]
     Active Substance: PEGVISOMANT
     Dosage: 10 MG, DAILY (DAY TWO STARTED 10 MG DAILY)
     Dates: start: 20190718
  3. SOMAVERT [Suspect]
     Active Substance: PEGVISOMANT
     Dosage: 20 MG, DAILY
     Dates: start: 20200220
  4. SOMAVERT [Suspect]
     Active Substance: PEGVISOMANT
     Dosage: 15 MG, DAILY (INCREASED TO 15 MG DAILY)
  5. SOMAVERT [Suspect]
     Active Substance: PEGVISOMANT
     Dosage: 40 MG, DAILY (40 MG SUBCUTANEOUSLY DAILY DAY ONE)
     Route: 058
     Dates: start: 20190717

REACTIONS (24)
  - Diabetes mellitus [Unknown]
  - Cortisol decreased [Unknown]
  - Blood calcium decreased [Unknown]
  - Eosinophil count increased [Unknown]
  - Blood growth hormone increased [Unknown]
  - Blood testosterone decreased [Unknown]
  - Vitamin D decreased [Unknown]
  - Basophil count increased [Unknown]
  - Sinusitis [Unknown]
  - Low density lipoprotein increased [Unknown]
  - Monocyte count increased [Unknown]
  - Hyperlipidaemia [Unknown]
  - Pituitary tumour [Unknown]
  - Blood chloride decreased [Unknown]
  - Fatigue [Unknown]
  - Blood triglycerides increased [Unknown]
  - Blood thyroid stimulating hormone decreased [Unknown]
  - Glycosylated haemoglobin increased [Unknown]
  - Blood glucose increased [Unknown]
  - Insulin-like growth factor increased [Recovering/Resolving]
  - Blood cholesterol increased [Unknown]
  - Blood 1,25-dihydroxycholecalciferol decreased [Unknown]
  - Hypogonadism [Unknown]
  - Insulin-like growth factor abnormal [Unknown]

NARRATIVE: CASE EVENT DATE: 20180710
